FAERS Safety Report 12182405 (Version 1)
Quarter: 2016Q1

REPORT INFORMATION
  Report Type: Spontaneous
  Country: US (occurrence: US)
  Receive Date: 20160316
  Receipt Date: 20160316
  Transmission Date: 20160526
  Serious: No
  Sender: FDA-Public Use
  Company Number: US-HOSPIRA-2725671

PATIENT
  Age: 39 Year
  Sex: Female
  Weight: 58.96 kg

DRUGS (2)
  1. STERILE WATER [Suspect]
     Active Substance: WATER
     Indication: MEDICATION DILUTION
     Route: 040
     Dates: start: 20150110, end: 20150120
  2. CEFTRIAXONE SANDOZ [Suspect]
     Active Substance: CEFTRIAXONE
     Indication: MENINGITIS
     Route: 040
     Dates: start: 20150110, end: 20150120

REACTIONS (4)
  - Heart rate increased [Recovered/Resolved]
  - Dysgeusia [Recovered/Resolved]
  - Medication error [Recovered/Resolved]
  - Tremor [Recovered/Resolved]

NARRATIVE: CASE EVENT DATE: 20150120
